FAERS Safety Report 10484240 (Version 2)
Quarter: 2014Q3

REPORT INFORMATION
  Report Type: Spontaneous
  Country: US (occurrence: US)
  Receive Date: 20140930
  Receipt Date: 20140930
  Transmission Date: 20150326
  Serious: Yes (Death)
  Sender: FDA-Public Use
  Company Number: US-CUBIST PHARMACEUTICALS, INC.-2011S1000134

PATIENT

DRUGS (3)
  1. CUBICIN [Suspect]
     Active Substance: DAPTOMYCIN
     Indication: OFF LABEL USE
  2. GENTAMICIN [Concomitant]
     Active Substance: GENTAMICIN
     Indication: ENTEROCOCCAL INFECTION
     Dosage: UNK UNK, UNK
     Route: 065
  3. CUBICIN [Suspect]
     Active Substance: DAPTOMYCIN
     Indication: ENTEROCOCCAL INFECTION
     Dosage: UNK UNK, UNK
     Route: 065

REACTIONS (2)
  - Death [Fatal]
  - Drug resistance [Unknown]
